FAERS Safety Report 7006594-4 (Version None)
Quarter: 2010Q3

REPORT INFORMATION
  Report Type: 
  Country: None (occurrence: None)
  Receive Date: 20100921
  Receipt Date: 20100921
  Transmission Date: 20110219
  Serious: Yes (Other)
  Sender: FDA-Public Use
  Company Number: None

PATIENT
  Age: 60 Year
  Sex: Male
  Weight: 115.6672 kg

DRUGS (1)
  1. CHANTIX [Suspect]

REACTIONS (7)
  - ANGER [None]
  - ANXIETY [None]
  - BELLIGERENCE [None]
  - HOMICIDAL IDEATION [None]
  - HOSTILITY [None]
  - PERSONALITY CHANGE [None]
  - SUICIDAL IDEATION [None]
